FAERS Safety Report 23724356 (Version 1)
Quarter: 2024Q2

REPORT INFORMATION
  Report Type: Spontaneous
  Country: IT (occurrence: IT)
  Receive Date: 20240409
  Receipt Date: 20240409
  Transmission Date: 20240715
  Serious: Yes (Hospitalization, Other)
  Sender: FDA-Public Use
  Company Number: None

PATIENT
  Age: 72 Year
  Sex: Male
  Weight: 68 kg

DRUGS (3)
  1. KEYTRUDA [Suspect]
     Active Substance: PEMBROLIZUMAB
     Indication: Renal cancer
     Dosage: PEMBROLIZUMAB 200 MG IN 100ML SALINE SOLUTION, ADMINISTERED INTRAVENOUSLY. IN 30 MINUTES, DAY 1 OF T
     Route: 042
     Dates: start: 20240214, end: 20240214
  2. KEYTRUDA [Suspect]
     Active Substance: PEMBROLIZUMAB
     Dosage: PEMBROLIZUMAB 200 MG IN 100ML SALINE SOLUTION, ADMINISTERED INTRAVENOUSLY. IN 30 MINUTES, DAY 1 OF T
     Route: 042
     Dates: start: 20240214, end: 20240214
  3. LENVATINIB MESYLATE [Concomitant]
     Active Substance: LENVATINIB MESYLATE
     Indication: Renal cancer
     Dosage: LENVATINIB (KISPLYX) 10 MG TABLETS, 2 TABLETS/DAY ORALLY, THERAPY NOT SUSPENDED FOLLOWING THE ADVERS
     Route: 048

REACTIONS (1)
  - Hypertransaminasaemia [Recovered/Resolved]

NARRATIVE: CASE EVENT DATE: 20240226
